FAERS Safety Report 6173664-2 (Version None)
Quarter: 2009Q2

REPORT INFORMATION
  Report Type: 
  Country: None (occurrence: None)
  Receive Date: 20090430
  Receipt Date: 20080122
  Transmission Date: 20091009
  Serious: Yes (Hospitalization)
  Sender: FDA-Public Use
  Company Number: BR-ROCHE-625933

PATIENT

DRUGS (2)
  1. PEG-INTERFERON ALFA 2A (RO 25-8310) [Suspect]
     Indication: HEPATITIS C
     Dosage: STRENGTH: 180 MCG/ML; FORM + FREQUENCY PER PROTOCOL
     Route: 058
  2. RIBAVIRIN [Suspect]
     Indication: HEPATITIS C
     Dosage: FORM, ROUTE AND STRENGTH AS PER PROTOCOL
     Route: 048

REACTIONS (1)
  - SYNCOPE [None]
